FAERS Safety Report 6357884-X (Version None)
Quarter: 2009Q3

REPORT INFORMATION
  Report Type: 
  Country: None (occurrence: None)
  Receive Date: 20090916
  Receipt Date: 20090911
  Transmission Date: 20100115
  Serious: Yes (Death)
  Sender: FDA-Public Use
  Company Number: CO-GENENTECH-290245

PATIENT
  Sex: Male

DRUGS (2)
  1. LUCENTIS [Suspect]
     Indication: MACULAR DEGENERATION
     Dosage: 1 AMP, 1/MONTH
     Route: 031
     Dates: start: 20090213
  2. LUCENTIS [Suspect]
     Dosage: 1 AMP, 1/MONTH
     Route: 031
     Dates: start: 20090402

REACTIONS (1)
  - DEATH [None]
